FAERS Safety Report 8503995 (Version 2)
Quarter: 2013Q3

REPORT INFORMATION
  Report Type: Spontaneous
  Country: US (occurrence: US)
  Receive Date: 20120411
  Receipt Date: 20130902
  Transmission Date: 20140515
  Serious: Yes (Other)
  Sender: FDA-Public Use
  Company Number: US-ROCHE-794348

PATIENT
  Age: 16 Year
  Sex: Female

DRUGS (3)
  1. ACCUTANE [Suspect]
     Indication: ACNE
     Route: 065
     Dates: start: 1985, end: 1987
  2. ACCUTANE [Suspect]
     Route: 065
  3. ACCUTANE [Suspect]
     Route: 065
     Dates: start: 1995, end: 1997

REACTIONS (7)
  - Crohn^s disease [Unknown]
  - Colitis ulcerative [Unknown]
  - Inflammatory bowel disease [Unknown]
  - Irritable bowel syndrome [Unknown]
  - Rash [Unknown]
  - Dermatitis exfoliative [Unknown]
  - White blood cell count decreased [Unknown]
